FAERS Safety Report 6127141-5 (Version None)
Quarter: 2009Q1

REPORT INFORMATION
  Report Type: 
  Country: None (occurrence: None)
  Receive Date: 20090320
  Receipt Date: 20090312
  Transmission Date: 20090719
  Serious: Yes (Other)
  Sender: FDA-Public Use
  Company Number: BR-PFIZER INC-2009183677

PATIENT

DRUGS (2)
  1. CELECOXIB [Suspect]
     Indication: ARTHRITIS
     Dosage: UNK
     Route: 048
     Dates: start: 20090101
  2. CLORANA [Concomitant]
     Dosage: UNK
     Dates: start: 20060101

REACTIONS (8)
  - ARTHRITIS REACTIVE [None]
  - EYE IRRITATION [None]
  - GENERALISED ERYTHEMA [None]
  - LIP SWELLING [None]
  - NAUSEA [None]
  - OEDEMA PERIPHERAL [None]
  - PRURITUS GENERALISED [None]
  - TREMOR [None]
